FAERS Safety Report 19761840 (Version 1)
Quarter: 2021Q3

REPORT INFORMATION
  Report Type: Spontaneous
  Country: US (occurrence: US)
  Receive Date: 20210829
  Receipt Date: 20210829
  Transmission Date: 20211014
  Serious: Yes (Hospitalization)
  Sender: FDA-Public Use
  Company Number: None

PATIENT
  Age: 60 Year
  Sex: Female
  Weight: 58.05 kg

DRUGS (6)
  1. COLACE [Suspect]
     Active Substance: DOCUSATE SODIUM
     Indication: CONSTIPATION
     Dosage: ?          OTHER FREQUENCY:1?3 DAILY;?
     Route: 048
  2. HYDROXYCHLOROQUINE [Concomitant]
     Active Substance: HYDROXYCHLOROQUINE
  3. FLEXIRAL. [Concomitant]
  4. D, B, QUERCITINE, [Concomitant]
  5. MYRBETRIQ [Concomitant]
     Active Substance: MIRABEGRON
  6. ALOE VERA PILLS [Concomitant]

REACTIONS (6)
  - Abdominal pain [None]
  - Nerve injury [None]
  - Pelvic pain [None]
  - Abdominal pain upper [None]
  - Muscle disorder [None]
  - Urinary retention [None]

NARRATIVE: CASE EVENT DATE: 20200825
